FAERS Safety Report 24587897 (Version 2)
Quarter: 2024Q4

REPORT INFORMATION
  Report Type: Spontaneous
  Country: IT (occurrence: IT)
  Receive Date: 20241107
  Receipt Date: 20241210
  Transmission Date: 20250115
  Serious: Yes (Life-Threatening, Other)
  Sender: RANBAXY
  Company Number: IT-SUN PHARMACEUTICAL INDUSTRIES LTD-2024R1-428978

PATIENT
  Age: 20 Year
  Sex: Male

DRUGS (19)
  1. METHOTREXATE [Suspect]
     Active Substance: METHOTREXATE
     Indication: Arthritis
     Dosage: 15 MILLIGRAM/SQ. METER, WEEKLY
     Route: 058
     Dates: start: 200408, end: 200603
  2. METHOTREXATE [Suspect]
     Active Substance: METHOTREXATE
     Indication: Haemophagocytic lymphohistiocytosis
     Dosage: 15 MILLIGRAM/SQ. METER, WEEKLY
     Route: 058
     Dates: start: 201007
  3. PREDNISONE [Suspect]
     Active Substance: PREDNISONE
     Indication: Haemophagocytic lymphohistiocytosis
     Dosage: 0.15 MILLIGRAM/KILOGRAM, DAILY
     Route: 048
  4. THALIDOMIDE [Suspect]
     Active Substance: THALIDOMIDE
     Indication: Arthritis
     Dosage: UNK
     Route: 065
  5. CYCLOSPORINE [Suspect]
     Active Substance: CYCLOSPORINE
     Indication: Arthritis
     Dosage: 100 MILLIGRAM, BID
     Route: 048
  6. CYCLOSPORINE [Suspect]
     Active Substance: CYCLOSPORINE
     Indication: Haemophagocytic lymphohistiocytosis
  7. ANAKINRA [Suspect]
     Active Substance: ANAKINRA
     Indication: Arthritis
     Dosage: 300 MILLIGRAM, DAILY
     Route: 040
  8. ANAKINRA [Suspect]
     Active Substance: ANAKINRA
     Indication: Haemophagocytic lymphohistiocytosis
  9. ETANERCEPT [Suspect]
     Active Substance: ETANERCEPT
     Indication: Arthritis
     Dosage: 0.8 MILLIGRAM/KILOGRAM, WEEKLY
     Route: 058
     Dates: start: 201310, end: 201803
  10. ETANERCEPT [Suspect]
     Active Substance: ETANERCEPT
     Indication: Haemophagocytic lymphohistiocytosis
     Dosage: 0.8 MILLIGRAM/KILOGRAM, WEEKLY
     Route: 058
     Dates: start: 200901, end: 201308
  11. ADALIMUMAB [Suspect]
     Active Substance: ADALIMUMAB
     Indication: Arthritis
     Dosage: 40 MILLIGRAM/2 WEEKS
     Route: 058
     Dates: start: 201308, end: 201310
  12. ADALIMUMAB [Suspect]
     Active Substance: ADALIMUMAB
     Indication: Haemophagocytic lymphohistiocytosis
     Dosage: 20 MILLIGRAM/2 WEEKS
     Route: 058
     Dates: start: 201308, end: 201310
  13. TOCILIZUMAB [Suspect]
     Active Substance: TOCILIZUMAB
     Indication: Arthritis
     Dosage: 12 MILLIGRAM/KILOGRAM/2 WEEKS
     Route: 048
     Dates: start: 200701, end: 200702
  14. TOCILIZUMAB [Suspect]
     Active Substance: TOCILIZUMAB
     Indication: Haemophagocytic lymphohistiocytosis
  15. ABATACEPT [Suspect]
     Active Substance: ABATACEPT
     Indication: Arthritis
     Dosage: UNK
     Route: 040
  16. ABATACEPT [Suspect]
     Active Substance: ABATACEPT
     Indication: Haemophagocytic lymphohistiocytosis
  17. BARICITINIB [Suspect]
     Active Substance: BARICITINIB
     Indication: Haemophagocytic lymphohistiocytosis
     Dosage: 4 MILLIGRAM, DAILY
     Route: 048
  18. CANAKINUMAB [Suspect]
     Active Substance: CANAKINUMAB
     Indication: Haemophagocytic lymphohistiocytosis
     Dosage: 300 MILLIGRAM/4 WEEKS
     Route: 065
     Dates: start: 201803, end: 202007
  19. AZATHIOPRINE [Suspect]
     Active Substance: AZATHIOPRINE
     Indication: Haemophagocytic lymphohistiocytosis
     Dosage: 2 MILLIGRAM/KILOGRAM, DAILY
     Route: 048
     Dates: start: 200603, end: 200606

REACTIONS (8)
  - Haemophagocytic lymphohistiocytosis [Unknown]
  - Therapeutic product effect incomplete [Unknown]
  - Thrombotic microangiopathy [Unknown]
  - Still^s disease [Unknown]
  - Drug ineffective for unapproved indication [Unknown]
  - COVID-19 [Unknown]
  - Off label use [Unknown]
  - Steroid dependence [Unknown]
